FAERS Safety Report 20984600 (Version 1)
Quarter: 2022Q2

REPORT INFORMATION
  Report Type: Spontaneous
  Country: US (occurrence: None)
  Receive Date: 20220621
  Receipt Date: 20220621
  Transmission Date: 20220721
  Serious: No
  Sender: FDA-Public Use
  Company Number: US-ROCHE-2834427

PATIENT
  Age: 70 Year
  Sex: Female

DRUGS (1)
  1. XELODA [Suspect]
     Active Substance: CAPECITABINE
     Indication: Product used for unknown indication
     Dosage: BID
     Route: 048
     Dates: start: 202104

REACTIONS (1)
  - Skin discolouration [Recovered/Resolved]

NARRATIVE: CASE EVENT DATE: 20210508
